FAERS Safety Report 7569349-8 (Version None)
Quarter: 2011Q2

REPORT INFORMATION
  Report Type: 
  Country: None (occurrence: None)
  Receive Date: 20110623
  Receipt Date: 20110622
  Transmission Date: 20111010
  Serious: Yes (Other)
  Sender: FDA-Public Use
  Company Number: CH-PFIZER INC-2011084082

PATIENT
  Age: 28 Year
  Sex: Female

DRUGS (9)
  1. EFFEXOR [Suspect]
     Indication: EMOTIONAL DISORDER
     Dosage: 300 MG, 1X/DAY
     Route: 048
     Dates: start: 20080101, end: 20110201
  2. NEXIUM [Concomitant]
     Dosage: 40 MG, 1X/DAY
     Route: 048
  3. EFFEXOR [Interacting]
     Dosage: 150 MG, 1X/DAY
     Route: 048
     Dates: start: 20110201
  4. ZOLPIDEM [Concomitant]
     Dosage: 10 MG, 1X/DAY
     Route: 048
  5. CONCERTA [Interacting]
     Indication: ATTENTION DEFICIT/HYPERACTIVITY DISORDER
     Dosage: 18 MG, 1X/DAY
     Route: 048
     Dates: start: 20110215
  6. ZYPREXA [Interacting]
     Indication: PERSONALITY DISORDER
     Dosage: 2.5 MG, 1X/DAY
     Route: 048
  7. PROMAZINE HYDROCHLORIDE [Interacting]
     Indication: PERSONALITY DISORDER
     Dosage: 25 MG, WEEKLY
     Route: 048
  8. EFFEXOR [Interacting]
     Dosage: 20% 1 DF, UNK
     Route: 048
     Dates: end: 20110501
  9. EFFEXOR [Interacting]
     Dosage: 75 MG, 1X/DAY
     Route: 048

REACTIONS (12)
  - NERVOUSNESS [None]
  - CARDIOVASCULAR DISORDER [None]
  - PYREXIA [None]
  - ASTHENIA [None]
  - DRUG INTERACTION [None]
  - HEADACHE [None]
  - DYSPNOEA [None]
  - SENSORY DISTURBANCE [None]
  - DISTURBANCE IN ATTENTION [None]
  - DIZZINESS [None]
  - CYANOSIS [None]
  - MUSCLE TWITCHING [None]
